FAERS Safety Report 5893845-2 (Version None)
Quarter: 2008Q3

REPORT INFORMATION
  Report Type: 
  Country: None (occurrence: None)
  Receive Date: 20080923
  Receipt Date: 20071115
  Transmission Date: 20090109
  Serious: No
  Sender: FDA-Public Use
  Company Number: US-ASTRAZENECA-2007UW25483

PATIENT
  Age: 32 Year
  Sex: Female

DRUGS (2)
  1. SEROQUEL [Suspect]
     Route: 048
  2. LAMICTAL [Concomitant]
     Route: 048

REACTIONS (3)
  - ANXIETY [None]
  - INCREASED APPETITE [None]
  - PANIC ATTACK [None]
